FAERS Safety Report 4816191-4 (Version None)
Quarter: 2005Q4

REPORT INFORMATION
  Report Type: 
  Country: None (occurrence: None)
  Receive Date: 20051027
  Receipt Date: 20051010
  Transmission Date: 20060501
  Serious: Yes (Death, Other)
  Sender: FDA-Public Use
  Company Number: 200512534GDS

PATIENT
  Age: 78 Year
  Sex: Male

DRUGS (2)
  1. TRASYLOL [Suspect]
     Indication: CORONARY ARTERY SURGERY
     Dosage: SEE IMAGE
     Route: 042
  2. CLOPIDOGREL BISULFATE [Concomitant]

REACTIONS (10)
  - BLOOD PRESSURE DECREASED [None]
  - CARDIAC ARREST [None]
  - CARDIAC VENTRICULAR DISORDER [None]
  - CONDUCTION DISORDER [None]
  - HEART RATE DECREASED [None]
  - MYOCARDIAL INFARCTION [None]
  - NEPHROSCLEROSIS [None]
  - PROCEDURAL COMPLICATION [None]
  - THERAPY NON-RESPONDER [None]
  - VENTRICULAR FIBRILLATION [None]
